FAERS Safety Report 11363084 (Version 1)
Quarter: 2015Q3

REPORT INFORMATION
  Report Type: Spontaneous
  Country: US (occurrence: None)
  Receive Date: 20150807
  Receipt Date: 20150807
  Transmission Date: 20151125
  Serious: Yes (Hospitalization)
  Sender: FDA-Public Use
  Company Number: None

PATIENT
  Age: 41 Year
  Sex: Male
  Weight: 73.3 kg

DRUGS (15)
  1. LACTULOSE (CHRONULAC) [Concomitant]
  2. LIDOCAINE (LIDOCAINE) [Concomitant]
     Active Substance: LIDOCAINE
  3. OXYCODONE (OXY-ZR) [Concomitant]
  4. HARVONI [Suspect]
     Active Substance: LEDIPASVIR\SOFOSBUVIR
     Indication: HEPATITIS C
     Dosage: 90/400MG
     Route: 048
     Dates: start: 20150411, end: 20150704
  5. MAGNESIUM OXIDE (MAG-OX) [Concomitant]
  6. FUROSEMIDE (LAXIS) [Concomitant]
  7. SODIUM CHLORIDE. [Concomitant]
     Active Substance: SODIUM CHLORIDE
  8. ZOFRAN [Concomitant]
     Active Substance: ONDANSETRON HYDROCHLORIDE
  9. MAGNESIUM [Concomitant]
     Active Substance: MAGNESIUM
  10. PENICILLIN [Concomitant]
     Active Substance: PENICILLIN
  11. CARVEDILOL (COREG) [Concomitant]
  12. RECOMBIVAX HB [Concomitant]
     Active Substance: HEPATITIS B VIRUS SUBTYPE ADW HBSAG SURFACE PROTEIN ANTIGEN
  13. TRAMADOL (ULTRAM) [Concomitant]
  14. COPEGUS [Suspect]
     Active Substance: RIBAVIRIN
     Indication: HEPATITIS C
     Route: 048
     Dates: start: 20150411, end: 20150603
  15. SPIRONOLACTONE (ALDACTONE) [Concomitant]

REACTIONS (14)
  - Vomiting [None]
  - Abdominal pain [None]
  - Nausea [None]
  - Hyponatraemia [None]
  - Abdominal hernia [None]
  - Acute kidney injury [None]
  - Small intestinal obstruction [None]
  - Diarrhoea [None]
  - Ileus [None]
  - Constipation [None]
  - Liver function test abnormal [None]
  - Hyperkalaemia [None]
  - Gallbladder disorder [None]
  - Incarcerated umbilical hernia [None]

NARRATIVE: CASE EVENT DATE: 20150529
